FAERS Safety Report 20746349 (Version 2)
Quarter: 2022Q2

REPORT INFORMATION
  Report Type: Spontaneous
  Country: US (occurrence: US)
  Receive Date: 20220425
  Receipt Date: 20220524
  Transmission Date: 20220720
  Serious: No
  Sender: FDA-Public Use
  Company Number: US-PFIZER INC-2020282712

PATIENT
  Age: 57 Year
  Sex: Male

DRUGS (1)
  1. LYRICA [Suspect]
     Active Substance: PREGABALIN
     Indication: Diabetic neuropathy
     Dosage: 100 MG, 3X/DAY
     Route: 048

REACTIONS (2)
  - Abnormal behaviour [Unknown]
  - Pain [Unknown]
